FAERS Safety Report 5089324-5 (Version None)
Quarter: 2006Q3

REPORT INFORMATION
  Report Type: 
  Country: None (occurrence: None)
  Receive Date: 20060822
  Receipt Date: 20060804
  Transmission Date: 20061208
  Serious: Yes (Hospitalization)
  Sender: FDA-Public Use
  Company Number: US200608001221

PATIENT
  Sex: Female
  Weight: 61.2 kg

DRUGS (3)
  1. FORTEO [Suspect]
     Indication: OSTEOPOROSIS
     Dates: start: 20050601, end: 20050601
  2. EVISTA [Suspect]
  3. FORTEO [Concomitant]

REACTIONS (1)
  - CEREBROVASCULAR ACCIDENT [None]
